FAERS Safety Report 20751670 (Version 13)
Quarter: 2022Q3

REPORT INFORMATION
  Report Type: Spontaneous
  Country: AR (occurrence: AR)
  Receive Date: 20220426
  Receipt Date: 20220927
  Transmission Date: 20221027
  Serious: Yes (Life-Threatening, Hospitalization, Other)
  Sender: FDA-Public Use
  Company Number: AR-NOVARTISPH-NVSC2022AR085106

PATIENT
  Age: 1 Year
  Sex: Female
  Weight: 11.9 kg

DRUGS (2)
  1. ZOLGENSMA [Suspect]
     Active Substance: ONASEMNOGENE ABEPARVOVEC-XIOI
     Indication: Spinal muscular atrophy
     Dosage: 1X5.5 ML/ 6X 8.3ML AR
     Route: 042
     Dates: start: 20220408
  2. ZOLGENSMA [Suspect]
     Active Substance: ONASEMNOGENE ABEPARVOVEC-XIOI
     Dosage: 2X5.5 ML/ 7X 8.3ML AR
     Route: 042
     Dates: start: 20220408

REACTIONS (24)
  - Atypical haemolytic uraemic syndrome [Unknown]
  - Thrombocytopenia [Not Recovered/Not Resolved]
  - Petechiae [Unknown]
  - Anuria [Not Recovered/Not Resolved]
  - Haemolysis [Not Recovered/Not Resolved]
  - Renal impairment [Unknown]
  - Hypertension [Recovering/Resolving]
  - Oliguria [Unknown]
  - Acute kidney injury [Unknown]
  - Thrombotic microangiopathy [Unknown]
  - Vomiting [Unknown]
  - Inflammation [Unknown]
  - Blood glucose increased [Unknown]
  - Condition aggravated [Unknown]
  - Partial seizures [Unknown]
  - Hypoventilation [Unknown]
  - Posterior reversible encephalopathy syndrome [Unknown]
  - Upper respiratory tract infection bacterial [Unknown]
  - Tachycardia [Recovering/Resolving]
  - Illness [Unknown]
  - Pyrexia [Recovering/Resolving]
  - Tracheitis [Unknown]
  - Alanine aminotransferase increased [Unknown]
  - Aspartate aminotransferase increased [Unknown]

NARRATIVE: CASE EVENT DATE: 20220410
